FAERS Safety Report 7987563-4 (Version None)
Quarter: 2011Q4

REPORT INFORMATION
  Report Type: 
  Country: None (occurrence: None)
  Receive Date: 20111216
  Receipt Date: 20110413
  Transmission Date: 20120403
  Serious: No
  Sender: FDA-Public Use
  Company Number: US-BRISTOL-MYERS SQUIBB COMPANY-15671597

PATIENT
  Age: 12 Year

DRUGS (3)
  1. ZOLOFT [Suspect]
     Indication: BIPOLAR DISORDER
  2. RISPERIDONE [Suspect]
     Indication: BIPOLAR DISORDER
  3. ABILIFY [Suspect]

REACTIONS (1)
  - HICCUPS [None]
